FAERS Safety Report 22714963 (Version 2)
Quarter: 2024Q3

REPORT INFORMATION
  Report Type: Spontaneous
  Country: FR (occurrence: FR)
  Receive Date: 20230718
  Receipt Date: 20240723
  Transmission Date: 20241016
  Serious: No
  Sender: ALKEM
  Company Number: FR-ALKEM LABORATORIES LIMITED-FR-ALKEM-2022-15472

PATIENT
  Sex: Female

DRUGS (5)
  1. DRONABINOL [Suspect]
     Active Substance: DRONABINOL
     Indication: Neuralgia
     Dosage: 2.5 MILLIGRAM, OD (ONCE DAILY IN THE EVENING) CAPSULE MOLLE, SOFT CAPSULE
     Route: 065
  2. DRONABINOL [Suspect]
     Active Substance: DRONABINOL
     Dosage: 2.5 MILLIGRAM, BID (5 MILLIGRAM / IN 2 INTAKES) CAPSULE MOLLE, SOFT CAPSULE
     Route: 065
     Dates: end: 20220829
  3. DRONABINOL [Suspect]
     Active Substance: DRONABINOL
     Dosage: 2.5 MILLIGRAM, BID (5 MILLIGRAM / IN 2 INTAKES) CAPSULE MOLLE, SOFT CAPSULE
     Route: 065
     Dates: start: 20220901
  4. DRONABINOL [Suspect]
     Active Substance: DRONABINOL
     Dosage: 2.5 MILLIGRAM, OD (CAPSULE MOLLE, SOFT CAPSULE)
     Route: 065
  5. DRONABINOL [Suspect]
     Active Substance: DRONABINOL
     Dosage: UNK (UNSPECIFIED POSOLOGY)
     Route: 065

REACTIONS (5)
  - Somnolence [Unknown]
  - No adverse event [Unknown]
  - Off label use [Unknown]
  - Prescribed underdose [Unknown]
  - Therapy interrupted [Unknown]
